FAERS Safety Report 5346531-1 (Version None)
Quarter: 2007Q2

REPORT INFORMATION
  Report Type: 
  Country: None (occurrence: None)
  Receive Date: 20070605
  Receipt Date: 20070523
  Transmission Date: 20071010
  Serious: Yes (Hospitalization)
  Sender: FDA-Public Use
  Company Number: US-AMGEN-US226114

PATIENT
  Sex: Male
  Weight: 52.7 kg

DRUGS (3)
  1. PROCRIT [Suspect]
     Indication: ANAEMIA
     Dates: start: 20070401
  2. FOLIC ACID [Concomitant]
     Dates: start: 20070501
  3. VITAMIN CAP [Concomitant]
     Dates: start: 20070501

REACTIONS (4)
  - ASTHENIA [None]
  - JOINT SWELLING [None]
  - MUSCULOSKELETAL STIFFNESS [None]
  - RECTAL HAEMORRHAGE [None]
